FAERS Safety Report 7789085-2 (Version None)
Quarter: 2011Q3

REPORT INFORMATION
  Report Type: 
  Country: None (occurrence: None)
  Receive Date: 20110930
  Receipt Date: 20110915
  Transmission Date: 20111222
  Serious: No
  Sender: FDA-Public Use
  Company Number: US-B.I. PHARMACEUTICALS,INC./RIDGEFIELD-2011-BP-22349BP

PATIENT
  Sex: Female

DRUGS (11)
  1. PRADAXA [Suspect]
     Indication: ATRIAL FIBRILLATION
     Dosage: 300 MG
     Route: 048
     Dates: start: 20110101, end: 20110701
  2. SOTALOL HCL [Concomitant]
     Indication: ATRIAL FIBRILLATION
     Dosage: 160 MG
     Route: 048
     Dates: start: 20110501
  3. VITAMIN D [Concomitant]
     Indication: VITAMIN SUPPLEMENTATION
     Route: 048
  4. HYDROCODONE BITARTRATE AND ACETAMINOPHEN [Concomitant]
     Indication: PAIN IN EXTREMITY
     Route: 048
  5. POTASSIUM [Concomitant]
     Indication: MINERAL SUPPLEMENTATION
     Dosage: 20 MG
     Route: 048
  6. DIGOXIN [Concomitant]
     Indication: ATRIAL FIBRILLATION
     Dosage: 0.125 MG
     Route: 048
     Dates: start: 20110101
  7. USTELL [Concomitant]
     Indication: BLADDER SPASM
     Route: 048
     Dates: start: 20110501
  8. PRADAXA [Suspect]
     Dosage: 150 MG
     Route: 048
     Dates: start: 20110701
  9. SMZ/SULFAMETH OXAZOLE [Concomitant]
     Indication: KIDNEY INFECTION
     Dosage: 800 MG
     Route: 048
     Dates: start: 20110801, end: 20110901
  10. TORSEMIDE [Concomitant]
     Indication: SWELLING
     Dosage: 30 MG
     Route: 048
  11. KEFLEX [Concomitant]
     Indication: KIDNEY INFECTION
     Dosage: 250 MG
     Route: 048
     Dates: start: 20110901

REACTIONS (3)
  - ANORECTAL DISCOMFORT [None]
  - GINGIVAL BLEEDING [None]
  - CONTUSION [None]
